FAERS Safety Report 5599367-0 (Version None)
Quarter: 2008Q1

REPORT INFORMATION
  Report Type: 
  Country: None (occurrence: None)
  Receive Date: 20080122
  Receipt Date: 20080109
  Transmission Date: 20080703
  Serious: Yes (Death, Life-Threatening, Other)
  Sender: FDA-Public Use
  Company Number: JP-PFIZER INC-2008001281

PATIENT
  Sex: Male
  Weight: 57 kg

DRUGS (15)
  1. CAMPTO [Suspect]
     Indication: LARGE INTESTINE CARCINOMA
     Dosage: DAILY DOSE:150MG/M2
     Route: 042
     Dates: start: 20071128, end: 20071219
  2. VITAMIN B COMPLEX CAP [Concomitant]
     Indication: FLUID REPLACEMENT
     Dosage: TEXT:1 DF
     Route: 042
     Dates: start: 20071226, end: 20071226
  3. PRIMPERAN INJ [Concomitant]
     Indication: VOMITING
     Dosage: DAILY DOSE:10MG
     Route: 042
     Dates: start: 20071226, end: 20071226
  4. POTACOL-R [Concomitant]
     Indication: FLUID REPLACEMENT
     Dosage: DAILY DOSE:500ML
     Route: 042
     Dates: start: 20071227, end: 20071227
  5. AMINO ACIDS/CARBOHYDRATES/MINERALS/VITAMINS, [Concomitant]
     Indication: FLUID REPLACEMENT
     Dosage: TEXT:1L
     Route: 042
     Dates: start: 20071227, end: 20071229
  6. LACTEC [Concomitant]
     Indication: FLUID REPLACEMENT
     Route: 042
     Dates: start: 20071226, end: 20071226
  7. ROPION [Concomitant]
     Indication: ANTIPYRESIS
     Dosage: DAILY DOSE:50MG
     Route: 042
     Dates: start: 20071228, end: 20080102
  8. AMINO ACIDS/CARBOHYDRATES/MINERALS/VITAMINS, [Concomitant]
     Dosage: TEXT:1L
     Route: 042
     Dates: start: 20071230, end: 20080105
  9. POTASSIUM PHOSPHATE DIBASIC [Concomitant]
     Indication: DRY MOUTH
     Route: 048
     Dates: start: 20071230, end: 20071230
  10. OMEPRAL [Concomitant]
     Indication: GASTRITIS PROPHYLAXIS
     Route: 042
     Dates: start: 20071231, end: 20080104
  11. MIDAZOLAM HCL [Concomitant]
     Indication: SEDATION
     Route: 042
     Dates: start: 20071231, end: 20071231
  12. LASIX [Concomitant]
     Indication: URINE OUTPUT DECREASED
     Route: 042
     Dates: start: 20080101, end: 20080103
  13. GLUCOSE [Concomitant]
     Indication: FLUID REPLACEMENT
     Route: 042
     Dates: start: 20080102, end: 20080104
  14. GLUCOSE [Concomitant]
     Route: 042
     Dates: start: 20080103, end: 20080103
  15. GASTER [Concomitant]
     Indication: GASTRITIS PROPHYLAXIS
     Route: 042
     Dates: start: 20080105, end: 20080105

REACTIONS (8)
  - BLOOD BILIRUBIN INCREASED [None]
  - DISSEMINATED INTRAVASCULAR COAGULATION [None]
  - FEBRILE NEUTROPENIA [None]
  - LEUKOPENIA [None]
  - NEUTROPENIA [None]
  - PNEUMONIA BACTERIAL [None]
  - SEPTIC SHOCK [None]
  - THROMBOCYTOPENIA [None]
